FAERS Safety Report 25775035 (Version 1)
Quarter: 2025Q3

REPORT INFORMATION
  Report Type: Spontaneous
  Country: CA (occurrence: None)
  Receive Date: 20250909
  Receipt Date: 20250909
  Transmission Date: 20251021
  Serious: Yes (Hospitalization)
  Sender: Harrow Health
  Company Number: NVSC2024CA122728

PATIENT
  Age: 67 Year
  Sex: Male

DRUGS (15)
  1. MAXIDEX [Suspect]
     Active Substance: DEXAMETHASONE
     Indication: Product used for unknown indication
     Route: 065
  2. APIXABAN [Suspect]
     Active Substance: APIXABAN
     Indication: Product used for unknown indication
     Route: 048
  3. METOPROLOL [Suspect]
     Active Substance: METOPROLOL
     Indication: Product used for unknown indication
     Route: 048
  4. LENALIDOMIDE [Suspect]
     Active Substance: LENALIDOMIDE
     Indication: Plasma cell myeloma
     Route: 048
  5. LENALIDOMIDE [Suspect]
     Active Substance: LENALIDOMIDE
     Route: 048
  6. ACYCLOVIR [Concomitant]
     Active Substance: ACYCLOVIR
  7. CLEARLAX [Concomitant]
     Active Substance: POLYETHYLENE GLYCOL 3350
  8. DOCUSATE [Concomitant]
     Active Substance: DOCUSATE
  9. FLECAINIDE [Concomitant]
     Active Substance: FLECAINIDE
  10. IBUPROFEN [Concomitant]
     Active Substance: IBUPROFEN
  11. LANSOPRAZOLE [Concomitant]
     Active Substance: LANSOPRAZOLE
  12. METHYLPREDNISOLONE [Concomitant]
     Active Substance: METHYLPREDNISOLONE
  13. TYLENOL EXTRA STRENGTH [Concomitant]
     Active Substance: ACETAMINOPHEN
  14. VELCADE [Concomitant]
     Active Substance: BORTEZOMIB
  15. VITAMIN D3 [Concomitant]
     Active Substance: CHOLECALCIFEROL

REACTIONS (4)
  - Fatigue [Unknown]
  - Hiccups [Unknown]
  - Therapy non-responder [Unknown]
  - Off label use [Unknown]
